FAERS Safety Report 8516514-9 (Version None)
Quarter: 2012Q3

REPORT INFORMATION
  Report Type: 
  Country: None (occurrence: None)
  Receive Date: 20120711
  Receipt Date: 20120711
  Transmission Date: 20120928
  Serious: Yes (Other)
  Sender: FDA-Public Use
  Company Number: None

PATIENT
  Age: 63 Year
  Sex: Male

DRUGS (1)
  1. ZELBORAF [Suspect]
     Indication: MALIGNANT MELANOMA
     Dosage: 960MG BID PO
     Route: 048
     Dates: start: 20120518

REACTIONS (3)
  - ARTHRALGIA [None]
  - RASH [None]
  - BONE PAIN [None]
